FAERS Safety Report 10619966 (Version 1)
Quarter: 2014Q4

REPORT INFORMATION
  Report Type: Spontaneous
  Country: US (occurrence: US)
  Receive Date: 20141202
  Receipt Date: 20141202
  Transmission Date: 20150529
  Serious: No
  Sender: FDA-Public Use
  Company Number: US-BAYER-2014-175154

PATIENT
  Age: 20 Year
  Sex: Female

DRUGS (3)
  1. BILTRICIDE [Suspect]
     Active Substance: PRAZIQUANTEL
     Indication: CESTODE INFECTION
     Dosage: 600 MG, TID
     Route: 048
     Dates: start: 201409
  2. BILTRICIDE [Suspect]
     Active Substance: PRAZIQUANTEL
     Indication: CESTODE INFECTION
     Dosage: 600 MG, TID
     Dates: start: 201410
  3. BILTRICIDE [Suspect]
     Active Substance: PRAZIQUANTEL
     Indication: CESTODE INFECTION
     Dosage: 600 MG, TID

REACTIONS (2)
  - Abnormal faeces [None]
  - Product use issue [None]
